FAERS Safety Report 15847891 (Version 3)
Quarter: 2019Q1

REPORT INFORMATION
  Report Type: Report from Study
  Country: US (occurrence: US)
  Receive Date: 20190121
  Receipt Date: 20190227
  Transmission Date: 20190417
  Serious: Yes (Death, Hospitalization, Other)
  Sender: FDA-Public Use
  Company Number: US-GILEAD-2019-0385668

PATIENT
  Age: 72 Year
  Sex: Female
  Weight: 59.41 kg

DRUGS (13)
  1. AMBRISENTAN [Suspect]
     Active Substance: AMBRISENTAN
     Indication: PRODUCT USED FOR UNKNOWN INDICATION
     Dosage: 5 MG, QD
     Route: 048
     Dates: start: 20180820
  2. LOSARTAN. [Concomitant]
     Active Substance: LOSARTAN
  3. DILT-XR [Concomitant]
     Active Substance: DILTIAZEM
  4. SPIRIVA [Concomitant]
     Active Substance: TIOTROPIUM BROMIDE MONOHYDRATE
  5. ZEMPLAR [Concomitant]
     Active Substance: PARICALCITOL
  6. ASPIRIN 81 [Concomitant]
     Active Substance: ASPIRIN
  7. CEFAZOLIN [Concomitant]
     Active Substance: CEFAZOLIN
  8. FUROSEMIDE. [Concomitant]
     Active Substance: FUROSEMIDE
  9. SORBITOL. [Concomitant]
     Active Substance: SORBITOL
  10. RENA-VITE [Concomitant]
     Active Substance: ASCORBIC ACID\BIOTIN\CALCIUM PANTOTHENATE\CYANOCOBALAMIN\FOLIC ACID\NIACINAMIDE\PYRIDOXINE HYDROCHLORIDE\RIBOFLAVIN\THIAMINE MONONITRATE
  11. SEVELAMER CARBONATE. [Concomitant]
     Active Substance: SEVELAMER CARBONATE
  12. ATORVASTATIN [Concomitant]
     Active Substance: ATORVASTATIN
  13. ARANESP [Concomitant]
     Active Substance: DARBEPOETIN ALFA

REACTIONS (6)
  - Femoral neck fracture [Fatal]
  - Gastrointestinal haemorrhage [Not Recovered/Not Resolved]
  - Intestinal obstruction [Fatal]
  - Cardiac arrest [Fatal]
  - Hypotension [Unknown]
  - Fall [Fatal]

NARRATIVE: CASE EVENT DATE: 20181214
